FAERS Safety Report 6173313-3 (Version None)
Quarter: 2009Q2

REPORT INFORMATION
  Report Type: 
  Country: None (occurrence: None)
  Receive Date: 20090430
  Receipt Date: 20090427
  Transmission Date: 20091009
  Serious: Yes (Hospitalization)
  Sender: FDA-Public Use
  Company Number: PHHO2006US08286

PATIENT
  Sex: Male
  Weight: 96.8 kg

DRUGS (8)
  1. CIBADREX T29368+ [Suspect]
     Indication: HYPERTENSION
     Dosage: LEVEL 1
     Route: 048
     Dates: start: 20050411, end: 20050425
  2. CIBADREX T29368+ [Suspect]
     Dosage: LEVEL 3
     Route: 048
     Dates: start: 20050426, end: 20050518
  3. CIBADREX T29368+ [Suspect]
     Dosage: LEVEL 3
     Route: 048
     Dates: start: 20050519, end: 20060307
  4. LASIX [Suspect]
     Dosage: 20 MG, QD
     Dates: start: 20050603, end: 20060330
  5. TERAZOSIN HCL [Suspect]
     Dosage: 5 MG, QD
     Dates: start: 20040101
  6. LIPITOR [Concomitant]
     Dosage: 20 MG, HS
     Route: 048
     Dates: start: 20000101
  7. GLYBURIDE [Concomitant]
     Dosage: 2.5 MG, QD
     Route: 048
     Dates: start: 20040101
  8. CRESTOR [Concomitant]
     Dosage: 20 MG, QD
     Route: 048
     Dates: start: 20050101

REACTIONS (4)
  - CRANIOTOMY [None]
  - FALL [None]
  - ORTHOSTATIC HYPOTENSION [None]
  - SUBDURAL HAEMATOMA [None]
